FAERS Safety Report 5019018-3 (Version None)
Quarter: 2006Q2

REPORT INFORMATION
  Report Type: 
  Country: None (occurrence: None)
  Receive Date: 20060606
  Receipt Date: 20060529
  Transmission Date: 20061013
  Serious: Yes (Disabling)
  Sender: FDA-Public Use
  Company Number: DK-GLAXOSMITHKLINE-B0426239A

PATIENT
  Age: 47 Year
  Sex: Female
  Weight: 57 kg

DRUGS (1)
  1. WELLBUTRIN [Suspect]
     Dates: start: 20060324, end: 20060520

REACTIONS (3)
  - FEELING ABNORMAL [None]
  - HYPOAESTHESIA [None]
  - VISION BLURRED [None]
